FAERS Safety Report 19842279 (Version 5)
Quarter: 2021Q4

REPORT INFORMATION
  Report Type: Report from Study
  Country: AU (occurrence: AU)
  Receive Date: 20210915
  Receipt Date: 20211108
  Transmission Date: 20220303
  Serious: Yes (Hospitalization)
  Sender: FDA-Public Use
  Company Number: AU-SEATTLE GENETICS-2021SGN03587

PATIENT
  Age: 57 Year
  Sex: Female
  Weight: 58.3 kg

DRUGS (7)
  1. TUCATINIB [Suspect]
     Active Substance: TUCATINIB
     Indication: HER2 positive breast cancer
     Dosage: 300 MG, TWICE DAILY ON A 21-DAY CYCLE
     Route: 048
     Dates: start: 20210623, end: 20210705
  2. ADO-TRASTUZUMAB EMTANSINE [Suspect]
     Active Substance: ADO-TRASTUZUMAB EMTANSINE
     Indication: HER2 positive breast cancer
     Dosage: 3.6 MG/KG EVERY 21-DAY CYCLE
     Route: 042
     Dates: start: 20210623, end: 20210623
  3. LEVOTHYROXINE [Concomitant]
     Active Substance: LEVOTHYROXINE
     Indication: Hypothyroidism
     Dosage: 50 MG
     Dates: start: 20201126
  4. MULTIVITAMIN [ASCORBIC ACID;CALCIUM PANTOTHENATE;COLECALCIFEROL;CYANOC [Concomitant]
     Dosage: UNK
     Dates: start: 20201127
  5. IRON [ASCORBIC ACID;FRUCTOOLIGOSACCHARIDES;IRON PENTACARBONYL] [Concomitant]
     Dosage: UNK
     Dates: start: 20201127
  6. FISH OIL [Concomitant]
     Active Substance: FISH OIL
     Dosage: UNK
     Dates: start: 20201127
  7. METOCLOPRAMIDE [Concomitant]
     Active Substance: METOCLOPRAMIDE

REACTIONS (1)
  - Pyrexia [Recovered/Resolved]

NARRATIVE: CASE EVENT DATE: 20210705
